FAERS Safety Report 8379659-2 (Version None)
Quarter: 2012Q2

REPORT INFORMATION
  Report Type: 
  Country: None (occurrence: None)
  Receive Date: 20120523
  Receipt Date: 20120515
  Transmission Date: 20120825
  Serious: Yes (Hospitalization, Other)
  Sender: FDA-Public Use
  Company Number: US-JNJFOC-20120507459

PATIENT
  Age: 61 Year
  Sex: Female
  Weight: 74.84 kg

DRUGS (3)
  1. ROGAINE (FOR WOMEN) [Suspect]
     Route: 061
     Dates: end: 20120101
  2. OSTEO BI-FLEX [Concomitant]
     Route: 065
  3. ROGAINE (FOR WOMEN) [Suspect]
     Indication: ALOPECIA
     Route: 061

REACTIONS (7)
  - MYOCARDIAL INFARCTION [None]
  - BURNING SENSATION [None]
  - CONVULSION [None]
  - WRONG TECHNIQUE IN DRUG USAGE PROCESS [None]
  - ALOPECIA [None]
  - UNDERDOSE [None]
  - PRODUCT PACKAGING ISSUE [None]
